FAERS Safety Report 15297176 (Version 1)
Quarter: 2018Q3

REPORT INFORMATION
  Report Type: Spontaneous
  Country: US (occurrence: US)
  Receive Date: 20180808
  Receipt Date: 20180808
  Transmission Date: 20181010
  Serious: Yes (Other)
  Sender: FDA-Public Use
  Company Number: None

PATIENT
  Age: 12 Year
  Sex: Male

DRUGS (1)
  1. CLEARLAX [Suspect]
     Active Substance: POLYETHYLENE GLYCOL 3350
     Indication: CONSTIPATION
     Dates: start: 20130801, end: 20170601

REACTIONS (4)
  - Tic [None]
  - Anger [None]
  - Speech disorder [None]
  - Developmental delay [None]

NARRATIVE: CASE EVENT DATE: 20150803
